FAERS Safety Report 6110725-8 (Version None)
Quarter: 2009Q1

REPORT INFORMATION
  Report Type: 
  Country: None (occurrence: None)
  Receive Date: 20090309
  Receipt Date: 20090224
  Transmission Date: 20090719
  Serious: Yes (Other)
  Sender: FDA-Public Use
  Company Number: CHPA2009US05297

PATIENT
  Age: 50 Year
  Sex: Female
  Weight: 54.4 kg

DRUGS (2)
  1. EXCEDRIN (MIGRAINE) [Suspect]
     Indication: PAIN IN EXTREMITY
     Dosage: 3 DF, FOUR TIMES IN 2 DAYS, ORAL; 3 DF, ONCE/SINGLE, ORAL
     Route: 048
     Dates: start: 20090220, end: 20090220
  2. EXCEDRIN (MIGRAINE) [Suspect]
     Indication: PAIN IN EXTREMITY
     Dosage: 3 DF, FOUR TIMES IN 2 DAYS, ORAL; 3 DF, ONCE/SINGLE, ORAL
     Route: 048
     Dates: start: 20090221, end: 20090221

REACTIONS (3)
  - HEADACHE [None]
  - OVERDOSE [None]
  - VOMITING [None]
